FAERS Safety Report 5741728-0 (Version None)
Quarter: 2008Q2

REPORT INFORMATION
  Report Type: 
  Country: None (occurrence: None)
  Receive Date: 20080519
  Receipt Date: 20070124
  Transmission Date: 20081010
  Serious: Yes (Other)
  Sender: FDA-Public Use
  Company Number: US-BAYER-US-2007-001952

PATIENT
  Age: 77 Year
  Sex: Male

DRUGS (1)
  1. ULTRAVIST 300 [Suspect]
     Indication: COMPUTERISED TOMOGRAM
     Dosage: UNIT DOSE: 100 ML
     Route: 042
     Dates: start: 20070115, end: 20070115

REACTIONS (4)
  - DIZZINESS [None]
  - FLUSHING [None]
  - HYPOTENSION [None]
  - URTICARIA [None]
